FAERS Safety Report 13781674 (Version 1)
Quarter: 2017Q3

REPORT INFORMATION
  Report Type: Spontaneous
  Country: FR (occurrence: FR)
  Receive Date: 20170724
  Receipt Date: 20170724
  Transmission Date: 20171127
  Serious: Yes (Hospitalization)
  Sender: FDA-Public Use
  Company Number: FR-PFIZER INC-3094142

PATIENT
  Age: 51 Year
  Sex: Female

DRUGS (8)
  1. POLARAMINE [Concomitant]
     Active Substance: DEXCHLORPHENIRAMINE MALEATE
     Indication: PREMEDICATION
     Dosage: 5 MG, UNK
  2. IRINOTECAN HCL [Suspect]
     Active Substance: IRINOTECAN HYDROCHLORIDE
     Indication: ADENOCARCINOMA OF COLON
     Dosage: 328 MG, FREQ: 1 DAY; INTERVAL: 1
     Route: 041
     Dates: start: 20150116, end: 20150116
  3. FLOUROURACIL [Concomitant]
     Active Substance: FLUOROURACIL
     Indication: ADENOCARCINOMA OF COLON
     Dosage: FREQ: CYCLICAL
     Route: 041
  4. LEVOFOLINATE SODIUM [Suspect]
     Active Substance: LEVOLEUCOVORIN DISODIUM
     Indication: ADENOCARCINOMA OF COLON
     Dosage: 270.92 MG, FREQ: 1 DAY; INTERVAL: 1
     Route: 041
     Dates: start: 20150116, end: 20150116
  5. ERBITUX [Concomitant]
     Active Substance: CETUXIMAB
     Dosage: 675 MG, FREQ: 1 DAY; INTERVAL: 1
     Route: 041
     Dates: start: 20150116, end: 20150116
  6. METHYLPREDNISOLONE MERCK [Concomitant]
     Active Substance: METHYLPREDNISOLONE
     Indication: PREMEDICATION
     Dosage: 60 MG, UNK
  7. ATROPINE. [Concomitant]
     Active Substance: ATROPINE
     Indication: PREMEDICATION
     Dosage: 0.25 MG, UNK
  8. ZOPHREN /00955301/ [Concomitant]
     Active Substance: ONDANSETRON
     Indication: PREMEDICATION
     Dosage: 8 MG, UNK

REACTIONS (3)
  - Blood pressure increased [Recovered/Resolved]
  - Formication [Recovered/Resolved]
  - Muscular weakness [Recovered/Resolved]

NARRATIVE: CASE EVENT DATE: 20150116
